FAERS Safety Report 5317657-3 (Version None)
Quarter: 2007Q2

REPORT INFORMATION
  Report Type: 
  Country: None (occurrence: None)
  Receive Date: 20070507
  Receipt Date: 20070424
  Transmission Date: 20071010
  Serious: Yes (Other)
  Sender: FDA-Public Use
  Company Number: PHEH2007US04221

PATIENT
  Age: 6 Year
  Sex: Male
  Weight: 18.7 kg

DRUGS (5)
  1. ZELNORM [Suspect]
     Indication: CONSTIPATION
     Dosage: 1 MG, BID
     Dates: start: 20050825, end: 20070326
  2. ZELNORM [Suspect]
     Dosage: 2 MG, BID
     Dates: start: 20070327, end: 20070328
  3. KEPPRA [Concomitant]
     Dosage: UNK, TID
  4. NEURONTIN [Concomitant]
     Dosage: UNK, TID
  5. PRILOSEC [Concomitant]
     Dosage: UNK, BID

REACTIONS (3)
  - HEART RATE DECREASED [None]
  - PALLOR [None]
  - SKIN DISCOLOURATION [None]
